FAERS Safety Report 5739754-0 (Version None)
Quarter: 2008Q2

REPORT INFORMATION
  Report Type: 
  Country: None (occurrence: None)
  Receive Date: 20080512
  Receipt Date: 20080512
  Transmission Date: 20081010
  Serious: Yes (Hospitalization)
  Sender: FDA-Public Use
  Company Number: None

PATIENT
  Age: 82 Year
  Sex: Male

DRUGS (1)
  1. IBUPROFEN [Suspect]
     Indication: ABDOMINAL PAIN
     Dosage: 400MG BID PO 2-3 WEEKS
     Route: 048

REACTIONS (2)
  - HAEMATEMESIS [None]
  - OESOPHAGITIS ULCERATIVE [None]
